FAERS Safety Report 24409216 (Version 2)
Quarter: 2025Q3

REPORT INFORMATION
  Report Type: Spontaneous
  Country: US (occurrence: US)
  Receive Date: 20241008
  Receipt Date: 20250809
  Transmission Date: 20251020
  Serious: Yes (Other)
  Sender: ALEXION PHARMACEUTICALS
  Company Number: US-ASTRAZENECA-202409USA008802US

PATIENT
  Sex: Female

DRUGS (9)
  1. SEROQUEL [Suspect]
     Active Substance: QUETIAPINE FUMARATE
     Indication: Product used for unknown indication
  2. FERROUS SULFATE [Concomitant]
     Active Substance: FERROUS SULFATE
     Route: 065
  3. ALPRAZOLAM [Concomitant]
     Active Substance: ALPRAZOLAM
     Route: 065
  4. IBUPROFEN [Concomitant]
     Active Substance: IBUPROFEN
     Route: 065
  5. NORETHINDRONE [Concomitant]
     Active Substance: NORETHINDRONE
     Route: 065
  6. SERTRALINE [Concomitant]
     Active Substance: SERTRALINE HYDROCHLORIDE
     Route: 065
  7. DOCUSATE SODIUM [Concomitant]
     Active Substance: DOCUSATE SODIUM
     Route: 065
  8. POLYETHYLENE GLYCOL [Concomitant]
     Active Substance: POLYETHYLENE GLYCOL
     Route: 065
  9. FERROUS FUMARATE [Concomitant]
     Active Substance: FERROUS FUMARATE
     Route: 065

REACTIONS (20)
  - Neuromyopathy [Unknown]
  - Neuropathy peripheral [Unknown]
  - Polycystic ovarian syndrome [Unknown]
  - Neck pain [Unknown]
  - Hypersensitivity [Unknown]
  - Anxiety [Unknown]
  - Arthritis [Unknown]
  - Back pain [Unknown]
  - Depression [Unknown]
  - Generalised anxiety disorder [Unknown]
  - Gastrooesophageal reflux disease [Unknown]
  - Headache [Unknown]
  - Hepatic mass [Unknown]
  - Obstructive sleep apnoea syndrome [Unknown]
  - Sciatica [Unknown]
  - JC polyomavirus test positive [Unknown]
  - Psychotic behaviour [Unknown]
  - Sleep apnoea syndrome [Unknown]
  - Visual impairment [Unknown]
  - Depression [Unknown]
